FAERS Safety Report 4976566-X (Version None)
Quarter: 2006Q2

REPORT INFORMATION
  Report Type: 
  Country: None (occurrence: None)
  Receive Date: 20060418
  Receipt Date: 20060418
  Transmission Date: 20061013
  Serious: Yes (Other)
  Sender: FDA-Public Use
  Company Number: None

PATIENT
  Age: 38 Year
  Sex: Male
  Weight: 70.3075 kg

DRUGS (3)
  1. PREDNISONE TAB [Suspect]
     Indication: COLITIS ULCERATIVE
     Dosage: 10      4      PO
     Route: 048
     Dates: start: 20060115, end: 20060417
  2. PREDNISONE TAB [Suspect]
     Indication: SCIATICA
     Dosage: 10      4      PO
     Route: 048
     Dates: start: 20060115, end: 20060417
  3. HYDROCODONE BITARTRATE + ACETAMINOPHEN [Concomitant]

REACTIONS (12)
  - CHILLS [None]
  - DEPRESSION [None]
  - FEELING ABNORMAL [None]
  - MALAISE [None]
  - MUSCLE SPASMS [None]
  - MUSCULAR WEAKNESS [None]
  - PAIN IN EXTREMITY [None]
  - TENDON DISORDER [None]
  - TREMOR [None]
  - VISUAL DISTURBANCE [None]
  - VITREOUS FLOATERS [None]
  - WEIGHT INCREASED [None]
